FAERS Safety Report 13305699 (Version 1)
Quarter: 2017Q1

REPORT INFORMATION
  Report Type: Spontaneous
  Country: US (occurrence: US)
  Receive Date: 20170308
  Receipt Date: 20170308
  Transmission Date: 20170428
  Serious: Yes (Other)
  Sender: FDA-Public Use
  Company Number: None

PATIENT
  Age: 5 Year
  Sex: Female
  Weight: 20.25 kg

DRUGS (3)
  1. FLINSTONE VITAMINS FOR CHILDREN [Concomitant]
  2. MONTELUKAST SOD 4MG TAB CHEW [Suspect]
     Active Substance: MONTELUKAST SODIUM
     Indication: HYPERSENSITIVITY
     Dosage: ?          QUANTITY:30 TABLET(S);?
     Route: 048
     Dates: start: 20170220, end: 20170307
  3. MIRALAX [Concomitant]
     Active Substance: POLYETHYLENE GLYCOL 3350

REACTIONS (3)
  - Urinary tract infection [None]
  - Hallucination [None]
  - Pollakiuria [None]

NARRATIVE: CASE EVENT DATE: 20170221
